FAERS Safety Report 5590017-6 (Version None)
Quarter: 2008Q1

REPORT INFORMATION
  Report Type: 
  Country: None (occurrence: None)
  Receive Date: 20080114
  Receipt Date: 20061226
  Transmission Date: 20080703
  Serious: No
  Sender: FDA-Public Use
  Company Number: US-ABBOTT-06P-163-0354465-00

PATIENT
  Sex: Male
  Weight: 11.804 kg

DRUGS (1)
  1. OMNICEF [Suspect]
     Indication: EAR INFECTION
     Route: 048
     Dates: start: 20061118, end: 20061122

REACTIONS (2)
  - DIARRHOEA [None]
  - OVERDOSE [None]
